FAERS Safety Report 4780707-7 (Version None)
Quarter: 2005Q3

REPORT INFORMATION
  Report Type: 
  Country: None (occurrence: None)
  Receive Date: 20050926
  Receipt Date: 20050919
  Transmission Date: 20060218
  Serious: Yes (Death)
  Sender: FDA-Public Use
  Company Number: 2004-120932-NL

PATIENT
  Age: 51 Year
  Sex: Female

DRUGS (6)
  1. MIRTAZAPINE [Suspect]
     Dosage: DF
  2. ZOPICLONE [Suspect]
     Dosage: DF
  3. LORAZEPAM [Suspect]
     Dosage: DF
  4. CHLORPROMAZINE [Suspect]
     Dosage: DF
  5. ALCOHOL [Suspect]
     Dosage: DF
  6. ETHANOL [Suspect]
     Dosage: DF

REACTIONS (1)
  - OVERDOSE [None]
